FAERS Safety Report 5084513-8 (Version None)
Quarter: 2006Q3

REPORT INFORMATION
  Report Type: 
  Country: None (occurrence: None)
  Receive Date: 20060821
  Receipt Date: 20060809
  Transmission Date: 20061208
  Serious: Yes (Other)
  Sender: FDA-Public Use
  Company Number: DE-GILEAD-2006-0010058

PATIENT
  Sex: Female

DRUGS (8)
  1. VIREAD [Suspect]
     Indication: HIV INFECTION
     Route: 048
     Dates: start: 20030313, end: 20050421
  2. LAMIVUDINE [Concomitant]
     Indication: HIV INFECTION
     Route: 048
     Dates: start: 19991101
  3. STAVUDINE [Concomitant]
     Indication: HIV INFECTION
     Route: 048
     Dates: start: 20050401
  4. STAVUDINE [Concomitant]
     Route: 048
     Dates: start: 20000501, end: 20010601
  5. EFAVIRENZ [Concomitant]
     Indication: HIV INFECTION
     Route: 048
     Dates: start: 20030301, end: 20050401
  6. EFAVIRENZ [Concomitant]
     Route: 048
     Dates: start: 20000501, end: 20030301
  7. ABACAVIR [Concomitant]
     Indication: HIV INFECTION
     Route: 048
     Dates: start: 20030301, end: 20050401
  8. LOPINAVIR [Concomitant]
     Indication: HIV INFECTION
     Dates: start: 20030301

REACTIONS (4)
  - CLAVICLE FRACTURE [None]
  - PELVIC FRACTURE [None]
  - RENAL FAILURE [None]
  - RIB FRACTURE [None]
